FAERS Safety Report 10080022 (Version 2)
Quarter: 2014Q2

REPORT INFORMATION
  Report Type: Report from Study
  Country: BR (occurrence: BR)
  Receive Date: 20140415
  Receipt Date: 20140515
  Transmission Date: 20141212
  Serious: Yes (Other)
  Sender: FDA-Public Use
  Company Number: PHHY2014BR044414

PATIENT
  Sex: Male
  Weight: 64 kg

DRUGS (6)
  1. EXJADE [Suspect]
     Indication: IRON OVERLOAD
     Dosage: 500 MG, DAILY
  2. EXJADE [Suspect]
     Dosage: 250 MG, DAILY
  3. EXJADE [Suspect]
     Dosage: 1 DF, (500 MG) DAILY
     Route: 048
  4. EXJADE [Suspect]
     Dosage: 2 DF, (500 MG) DAILY
     Route: 048
  5. VASOGARD [Concomitant]
     Indication: BLOOD PRESSURE
     Dosage: 0.5 DF, DAY AND NIGHT
  6. ARADOIS [Concomitant]
     Indication: BLOOD PRESSURE
     Dosage: 0.5 DF, UNK

REACTIONS (4)
  - Depression [Recovered/Resolved]
  - Gastrointestinal anastomotic leak [Recovered/Resolved]
  - Anxiety [Recovered/Resolved]
  - Melaena [Recovered/Resolved]
